FAERS Safety Report 5868600-X (Version None)
Quarter: 2008Q3

REPORT INFORMATION
  Report Type: 
  Country: None (occurrence: None)
  Receive Date: 20080828
  Receipt Date: 20080815
  Transmission Date: 20090109
  Serious: Yes (Death, Hospitalization)
  Sender: FDA-Public Use
  Company Number: 2008002059

PATIENT
  Sex: Female

DRUGS (2)
  1. ERLOTINIB (ERLOTINIB) (TABLET) (ERLOTINIB) [Suspect]
     Indication: OVARIAN CANCER
     Dosage: (150 MG, QD) ORAL
     Route: 048
  2. BEVACIZUMAB (INJECTION FOR INFUSION) [Suspect]
     Dosage: (15 MG/KG,DAY 1 EVERY 21 DAYS), INTRAVENOUS
     Route: 042

REACTIONS (3)
  - GASTROINTESTINAL PERFORATION [None]
  - LIVER DISORDER [None]
  - SMALL INTESTINAL OBSTRUCTION [None]
